FAERS Safety Report 9753776 (Version 1)
Quarter: 2013Q4

REPORT INFORMATION
  Report Type: Spontaneous
  Country: US (occurrence: US)
  Receive Date: 20131213
  Receipt Date: 20131213
  Transmission Date: 20140711
  Serious: No
  Sender: FDA-Public Use
  Company Number: US-GILEAD-2010-0027079

PATIENT
  Age: 75 Year
  Sex: Female

DRUGS (5)
  1. LETAIRIS [Suspect]
     Indication: PULMONARY HYPERTENSION
     Route: 048
     Dates: start: 20100121
  2. OMEPRAZOLE [Concomitant]
  3. ASA [Concomitant]
  4. PREDNISONE [Concomitant]
  5. ATENOLOL [Concomitant]

REACTIONS (3)
  - Paraesthesia [Not Recovered/Not Resolved]
  - Oedema peripheral [Not Recovered/Not Resolved]
  - Sinus congestion [Not Recovered/Not Resolved]
